FAERS Safety Report 10351319 (Version 4)
Quarter: 2014Q3

REPORT INFORMATION
  Report Type: Spontaneous
  Country: CN (occurrence: CN)
  Receive Date: 20140730
  Receipt Date: 20140902
  Transmission Date: 20150326
  Serious: Yes (Death, Hospitalization)
  Sender: FDA-Public Use
  Company Number: CN-GLAXOSMITHKLINE-B1018709A

PATIENT
  Age: 55 Year
  Sex: Female
  Weight: 62 kg

DRUGS (2)
  1. TYKERB [Suspect]
     Active Substance: LAPATINIB DITOSYLATE
     Indication: BREAST CANCER
     Dosage: 1250MG PER DAY
     Route: 048
     Dates: start: 20130822, end: 20140725
  2. XELODA [Suspect]
     Active Substance: CAPECITABINE
     Indication: BREAST CANCER
     Dosage: 2000MGM2 TWICE PER DAY
     Route: 048
     Dates: start: 20130822, end: 20140725

REACTIONS (6)
  - Cardiac failure [Fatal]
  - Dyspnoea [Unknown]
  - Hydrothorax [Unknown]
  - Palpitations [Unknown]
  - Pericardial effusion [Unknown]
  - Disease progression [Fatal]

NARRATIVE: CASE EVENT DATE: 2014
